FAERS Safety Report 6580982-2 (Version None)
Quarter: 2010Q1

REPORT INFORMATION
  Report Type: 
  Country: None (occurrence: None)
  Receive Date: 20100215
  Receipt Date: 20100204
  Transmission Date: 20100710
  Serious: Yes (Other)
  Sender: FDA-Public Use
  Company Number: US-TEVA-223216USA

PATIENT
  Sex: Female
  Weight: 84.444 kg

DRUGS (4)
  1. PLAN B ONE-STEP [Suspect]
     Indication: POST COITAL CONTRACEPTION
     Route: 048
     Dates: start: 20100112, end: 20100112
  2. PLAN B ONE-STEP [Suspect]
     Route: 048
     Dates: start: 20100118, end: 20100118
  3. PLAN B ONE-STEP [Suspect]
     Route: 048
     Dates: start: 20100125, end: 20100125
  4. SEASONIQUE [Concomitant]
     Indication: CONTRACEPTION

REACTIONS (1)
  - LIVER FUNCTION TEST ABNORMAL [None]
